FAERS Safety Report 16737752 (Version 3)
Quarter: 2020Q1

REPORT INFORMATION
  Report Type: Spontaneous
  Country: US (occurrence: US)
  Receive Date: 20190823
  Receipt Date: 20200206
  Transmission Date: 20200409
  Serious: Yes (Hospitalization, Other)
  Sender: FDA-Public Use
  Company Number: US-ELI_LILLY_AND_COMPANY-US201908006698

PATIENT
  Age: 72 Year
  Sex: Female

DRUGS (7)
  1. NOVOLOG [Concomitant]
     Active Substance: INSULIN ASPART
     Indication: TYPE 2 DIABETES MELLITUS
     Dosage: (70/30) SINCE YEARS
     Route: 065
  2. HUMALOG MIX75/25 [Suspect]
     Active Substance: INSULIN LISPRO
     Indication: TYPE 2 DIABETES MELLITUS
     Dosage: 60 U, EACH MORNING
     Route: 058
  3. HUMULIN 70/30 [Suspect]
     Active Substance: INSULIN HUMAN
     Indication: TYPE 2 DIABETES MELLITUS
     Dosage: 22 U, EACH MORNING
     Route: 058
  4. HUMALOG MIX75/25 [Suspect]
     Active Substance: INSULIN LISPRO
     Indication: TYPE 2 DIABETES MELLITUS
     Dosage: SINCE MANY YEARS
     Route: 058
  5. HUMULIN 70/30 [Suspect]
     Active Substance: INSULIN HUMAN
     Dosage: 30 U, EACH EVENING
     Route: 058
  6. HUMALOG MIX75/25 [Suspect]
     Active Substance: INSULIN LISPRO
     Dosage: 60 U, EACH EVENING
     Route: 058
  7. HUMALOG MIX75/25 [Suspect]
     Active Substance: INSULIN LISPRO
     Dosage: SINCE MANY YEARS
     Route: 058

REACTIONS (11)
  - Atrial fibrillation [Unknown]
  - Cerebrovascular accident [Recovering/Resolving]
  - Diabetic retinopathy [Unknown]
  - Cardiac disorder [Unknown]
  - Thrombosis [Unknown]
  - Sepsis [Unknown]
  - Cardiac infection [Unknown]
  - Blood glucose increased [Unknown]
  - Incoherent [Unknown]
  - Tachycardia [Unknown]
  - Amnesia [Unknown]

NARRATIVE: CASE EVENT DATE: 20190727
